FAERS Safety Report 16835776 (Version 1)
Quarter: 2019Q3

REPORT INFORMATION
  Report Type: Spontaneous
  Country: TR (occurrence: TR)
  Receive Date: 20190920
  Receipt Date: 20190920
  Transmission Date: 20191005
  Serious: Yes (Congenital Anomaly)
  Sender: FDA-Public Use
  Company Number: TR-ALLERGAN-1938452US

PATIENT

DRUGS (2)
  1. HYDROCHLOROTHIAZIDE UNK [Suspect]
     Active Substance: HYDROCHLOROTHIAZIDE
     Indication: EXPOSURE DURING PREGNANCY
     Dosage: UNK
     Route: 064
  2. CANDESARTAN. [Suspect]
     Active Substance: CANDESARTAN
     Indication: EXPOSURE DURING PREGNANCY
     Dosage: UNK
     Route: 064

REACTIONS (2)
  - Congenital hydrocephalus [Unknown]
  - Nephrolithiasis [Unknown]
